FAERS Safety Report 7437279-8 (Version None)
Quarter: 2011Q2

REPORT INFORMATION
  Report Type: 
  Country: None (occurrence: None)
  Receive Date: 20110426
  Receipt Date: 20110417
  Transmission Date: 20111010
  Serious: Yes (Hospitalization, Other)
  Sender: FDA-Public Use
  Company Number: IL-GENZYME-CERZ-1002021

PATIENT
  Sex: Female
  Weight: 60 kg

DRUGS (2)
  1. CEREZYME [Suspect]
     Indication: GAUCHER'S DISEASE
     Dosage: 15 U/KG, Q2W
     Route: 042
  2. PNEUMOVAX 23 [Concomitant]
     Indication: PRODUCT USED FOR UNKNOWN INDICATION

REACTIONS (2)
  - SPLENIC INFARCTION [None]
  - SPLENOMEGALY [None]
